FAERS Safety Report 8266475-5 (Version None)
Quarter: 2012Q2

REPORT INFORMATION
  Report Type: 
  Country: None (occurrence: None)
  Receive Date: 20120406
  Receipt Date: 20120328
  Transmission Date: 20120825
  Serious: Yes (Hospitalization)
  Sender: FDA-Public Use
  Company Number: US-ASTRAZENECA-2012SE20496

PATIENT
  Age: 71 Year
  Sex: Female
  Weight: 88 kg

DRUGS (15)
  1. NEXIUM [Suspect]
     Indication: GASTRIC ULCER
     Route: 048
     Dates: start: 20080101
  2. PROAIR HFA [Concomitant]
     Dosage: AS REQUIRED
  3. NEXIUM [Suspect]
     Indication: HIATUS HERNIA
     Route: 048
     Dates: start: 20080101
  4. DILTIAZEM HCL [Concomitant]
  5. ZYRTEC [Concomitant]
     Indication: MULTIPLE ALLERGIES
  6. LISINOPRIL [Concomitant]
  7. ASPIRIN [Concomitant]
  8. SIMVASTATIN [Concomitant]
  9. ZOLOFT [Concomitant]
  10. BUSPAR [Concomitant]
  11. ISOSORBIDE MONONITRATE CR [Concomitant]
  12. NITROGLYCERIN [Concomitant]
     Dosage: AS REQUIRED
  13. VICODIN [Concomitant]
     Indication: PAIN
  14. SYMBICORT [Suspect]
     Indication: ASTHMA
     Dosage: 160/4.5 MCG, TWO PUFFS, TWO TIMES A DAY
     Route: 055
     Dates: start: 20100413
  15. EFFIENT [Concomitant]

REACTIONS (6)
  - DYSPNOEA [None]
  - DIABETES MELLITUS [None]
  - INTENTIONAL DRUG MISUSE [None]
  - CORONARY ARTERY OCCLUSION [None]
  - BRONCHITIS [None]
  - DYSPEPSIA [None]
